FAERS Safety Report 19042273 (Version 1)
Quarter: 2021Q1

REPORT INFORMATION
  Report Type: Spontaneous
  Country: US (occurrence: US)
  Receive Date: 20210322
  Receipt Date: 20210322
  Transmission Date: 20210420
  Serious: Yes (Other)
  Sender: FDA-Public Use
  Company Number: None

PATIENT
  Age: 43 Year
  Sex: Male

DRUGS (1)
  1. BACTINE MAX [Suspect]
     Active Substance: BENZALKONIUM CHLORIDE\LIDOCAINE HYDROCHLORIDE
     Indication: CUTANEOUS LARVA MIGRANS
     Route: 061
     Dates: start: 20200115, end: 20210319

REACTIONS (2)
  - Device safety feature issue [None]
  - Infection [None]

NARRATIVE: CASE EVENT DATE: 20210322
